FAERS Safety Report 9008938 (Version 1)
Quarter: 2013Q1

REPORT INFORMATION
  Report Type: Spontaneous
  Country: US (occurrence: US)
  Receive Date: 20130111
  Receipt Date: 20130111
  Transmission Date: 20140127
  Serious: Yes (Hospitalization, Other)
  Sender: FDA-Public Use
  Company Number: US-009507513-1301USA002449

PATIENT
  Age: 33 Year
  Sex: Male

DRUGS (8)
  1. KIPRES [Suspect]
     Route: 048
  2. HUSCODE [Suspect]
     Indication: ACUTE SINUSITIS
     Dosage: 1 DF, UNK
     Route: 048
  3. GATIFLOXACIN [Suspect]
     Indication: COUGH
     Route: 048
  4. GATIFLOXACIN [Suspect]
     Indication: PHARYNGITIS
  5. GATIFLOXACIN [Suspect]
     Indication: RHINITIS ALLERGIC
  6. AMBROXOL HYDROCHLORIDE [Suspect]
     Route: 048
  7. BETAMETHASONE SODIUM PHOSPHATE [Concomitant]
     Route: 045
  8. AZULENE [Concomitant]
     Route: 049

REACTIONS (5)
  - Neuropathy peripheral [Unknown]
  - Muscular weakness [Unknown]
  - Eczema [Unknown]
  - Conjunctivitis allergic [Unknown]
  - Anaphylactic shock [Unknown]
